FAERS Safety Report 22540533 (Version 1)
Quarter: 2023Q2

REPORT INFORMATION
  Report Type: Spontaneous
  Country: US (occurrence: None)
  Receive Date: 20230608
  Receipt Date: 20230608
  Transmission Date: 20230722
  Serious: No
  Sender: FDA-Public Use
  Company Number: None

PATIENT
  Sex: Male

DRUGS (14)
  1. ABIRATERONE ACETATE [Suspect]
     Active Substance: ABIRATERONE ACETATE
     Indication: Prostate cancer
     Dosage: OTHER QUANTITY : 4T;?FREQUENCY : DAILY;?
     Route: 048
     Dates: start: 202305
  2. ASPIRIN [Concomitant]
     Active Substance: ASPIRIN
  3. ATENOLOL [Concomitant]
     Active Substance: ATENOLOL
  4. VITAMINS [Concomitant]
     Active Substance: VITAMINS
  5. ROSUVASTATIN [Concomitant]
     Active Substance: ROSUVASTATIN
  6. RAMIPRIL [Concomitant]
     Active Substance: RAMIPRIL
  7. ZINC [Concomitant]
     Active Substance: ZINC
  8. METFORMIN [Concomitant]
     Active Substance: METFORMIN HYDROCHLORIDE
  9. CALCIUM [Concomitant]
     Active Substance: CALCIUM
  10. VITAMIN B12 [Concomitant]
     Active Substance: CYANOCOBALAMIN
  11. GLIPIZIDE [Concomitant]
     Active Substance: GLIPIZIDE
  12. PREDNISONE [Concomitant]
     Active Substance: PREDNISONE
  13. DOXYCYCLINE [Concomitant]
     Active Substance: DOXYCYCLINE
  14. CEFUOXIME [Concomitant]

REACTIONS (1)
  - Pneumonia [None]
